FAERS Safety Report 5531541-1 (Version None)
Quarter: 2007Q4

REPORT INFORMATION
  Report Type: 
  Country: None (occurrence: None)
  Receive Date: 20071203
  Receipt Date: 20071122
  Transmission Date: 20080405
  Serious: Yes (Hospitalization)
  Sender: FDA-Public Use
  Company Number: PHHO2007JP18029

PATIENT
  Sex: Female
  Weight: 44 kg

DRUGS (2)
  1. DIOVAN [Suspect]
     Indication: HYPERTENSION
     Dosage: 80 MG, QD
     Route: 048
     Dates: start: 20030714, end: 20060425
  2. LOCHOL [Concomitant]
     Indication: HYPERCHOLESTEROLAEMIA
     Dosage: 20 MG/ DAY
     Route: 048
     Dates: start: 20030630

REACTIONS (1)
  - EMBOLIC CEREBRAL INFARCTION [None]
